FAERS Safety Report 15546216 (Version 1)
Quarter: 2018Q4

REPORT INFORMATION
  Report Type: Report from Study
  Country: US (occurrence: US)
  Receive Date: 20181024
  Receipt Date: 20181024
  Transmission Date: 20190205
  Serious: Yes (Other)
  Sender: FDA-Public Use
  Company Number: PHEH2018US044077

PATIENT
  Sex: Male

DRUGS (1)
  1. ENTRESTO [Suspect]
     Active Substance: SACUBITRIL\VALSARTAN
     Indication: PRODUCT USED FOR UNKNOWN INDICATION
     Dosage: UNK
     Route: 048

REACTIONS (7)
  - Malaise [Unknown]
  - Ejection fraction decreased [Unknown]
  - Chronic obstructive pulmonary disease [Unknown]
  - Deafness [Unknown]
  - Blood glucose increased [Unknown]
  - Cardiac disorder [Unknown]
  - Asthenia [Unknown]
